FAERS Safety Report 10367203 (Version 1)
Quarter: 2014Q3

REPORT INFORMATION
  Report Type: Spontaneous
  Country: CA (occurrence: CA)
  Receive Date: 20140807
  Receipt Date: 20140807
  Transmission Date: 20150326
  Serious: Yes (Other)
  Sender: FDA-Public Use
  Company Number: CA-ROCHE-1446307

PATIENT
  Age: 55 Year
  Sex: Female

DRUGS (5)
  1. TYKERB [Suspect]
     Active Substance: LAPATINIB DITOSYLATE
     Route: 048
  2. XELODA [Suspect]
     Active Substance: CAPECITABINE
     Dosage: CYCLICAL
     Route: 065
  3. TYKERB [Suspect]
     Active Substance: LAPATINIB DITOSYLATE
     Indication: PRODUCT USED FOR UNKNOWN INDICATION
     Dosage: CYCLICAL
     Route: 048
  4. XELODA [Suspect]
     Active Substance: CAPECITABINE
     Indication: PRODUCT USED FOR UNKNOWN INDICATION
     Dosage: THERAPY DURATION:  939.0 DAY(S)
     Route: 065
  5. PAMIDRONATE DISODIUM. [Concomitant]
     Active Substance: PAMIDRONATE DISODIUM
     Route: 042

REACTIONS (10)
  - Malignant neoplasm progression [Unknown]
  - Weight decreased [Unknown]
  - Hepatic cancer [Unknown]
  - Oral mucosal blistering [Unknown]
  - Hepatic enzyme increased [Unknown]
  - Nausea [Unknown]
  - Diarrhoea [Unknown]
  - Hepatotoxicity [Unknown]
  - Vomiting [Unknown]
  - Palmar-plantar erythrodysaesthesia syndrome [Unknown]
